FAERS Safety Report 18200741 (Version 1)
Quarter: 2020Q3

REPORT INFORMATION
  Report Type: Spontaneous
  Country: FR (occurrence: FR)
  Receive Date: 20200826
  Receipt Date: 20200826
  Transmission Date: 20201103
  Serious: Yes (Other)
  Sender: FDA-Public Use
  Company Number: FR-US-PROVELL PHARMACEUTICALS LLC-E2B_90079558

PATIENT
  Age: 60 Year
  Sex: Female

DRUGS (3)
  1. LEVOTHYROX [Suspect]
     Active Substance: LEVOTHYROXINE
     Indication: HYPOTHYROIDISM
     Route: 048
  2. KALEORID [Suspect]
     Active Substance: POTASSIUM CHLORIDE
     Indication: HYPOKALAEMIA
     Dosage: NOT REPORTED
     Route: 048
     Dates: start: 201901
  3. CASPOFUNGINE [Suspect]
     Active Substance: CASPOFUNGIN
     Indication: FUNGAL INFECTION
     Route: 042
     Dates: start: 201901

REACTIONS (1)
  - Thrombocytopenia [Not Recovered/Not Resolved]

NARRATIVE: CASE EVENT DATE: 201901
